FAERS Safety Report 9337288 (Version 6)
Quarter: 2014Q1

REPORT INFORMATION
  Report Type: Spontaneous
  Country: US (occurrence: US)
  Receive Date: 20130607
  Receipt Date: 20140320
  Transmission Date: 20141002
  Serious: Yes (Hospitalization, Other)
  Sender: FDA-Public Use
  Company Number: US-009507513-1305USA017858

PATIENT
  Sex: Female
  Weight: 68.27 kg

DRUGS (3)
  1. FOSAMAX [Suspect]
     Indication: OSTEOPOROSIS PROPHYLAXIS
     Dosage: 70 MG, QW
     Route: 048
     Dates: start: 19951028, end: 200804
  2. FOSAMAX [Suspect]
     Indication: OSTEOPOROSIS
  3. ALENDRONATE SODIUM [Suspect]
     Indication: PROPHYLAXIS
     Dosage: 70 MG, QW
     Route: 048
     Dates: start: 200804, end: 201004

REACTIONS (39)
  - Femur fracture [Recovered/Resolved]
  - Intramedullary rod insertion [Unknown]
  - Hypoacusis [Unknown]
  - Colon cancer [Unknown]
  - Colectomy [Unknown]
  - Cerebral infarction [Unknown]
  - Thalamic infarction [Unknown]
  - Ankle fracture [Unknown]
  - Type 2 diabetes mellitus [Unknown]
  - Hypertension [Unknown]
  - Hypercholesterolaemia [Unknown]
  - Osteoporosis [Unknown]
  - Osteoarthritis [Unknown]
  - Dehydration [Unknown]
  - Wheezing [Recovered/Resolved]
  - Alveolitis allergic [Unknown]
  - Sciatica [Unknown]
  - Radiculopathy [Unknown]
  - Extraskeletal ossification [Unknown]
  - Herpes zoster [Unknown]
  - Synovial cyst [Unknown]
  - Uterine polypectomy [Unknown]
  - Bursa calcification [Unknown]
  - Dementia [Unknown]
  - Large intestine polyp [Unknown]
  - Sciatica [Unknown]
  - Anaemia postoperative [Unknown]
  - Hypoxia [Recovering/Resolving]
  - Atelectasis [Unknown]
  - Hypomagnesaemia [Recovered/Resolved]
  - Hypokalaemia [Recovered/Resolved]
  - Urinary retention [Unknown]
  - Vascular calcification [Unknown]
  - Acquired diaphragmatic eventration [Unknown]
  - Osteopenia [Unknown]
  - Arthralgia [Unknown]
  - Dizziness [Unknown]
  - Constipation [Unknown]
  - Gastrooesophageal reflux disease [Unknown]
